FAERS Safety Report 20462818 (Version 2)
Quarter: 2022Q1

REPORT INFORMATION
  Report Type: Spontaneous
  Country: US (occurrence: US)
  Receive Date: 20220211
  Receipt Date: 20220301
  Transmission Date: 20220424
  Serious: Yes (Hospitalization, Other)
  Sender: FDA-Public Use
  Company Number: US-MLMSERVICE-20220103-3298761-1

PATIENT
  Age: 29 Year
  Sex: Female

DRUGS (9)
  1. DEXAMETHASONE [Suspect]
     Active Substance: DEXAMETHASONE
     Indication: Spinal cord compression
     Dosage: 10 MG,ON HD 25, DEXAMETHASONE WAS INCREASED TO 10 MG IV Q8 HOURS
     Route: 042
  2. DEXAMETHASONE [Suspect]
     Active Substance: DEXAMETHASONE
     Dosage: 10 MG,EVERY MORNING WAS STARTED ON HD 20
     Route: 042
  3. DEXAMETHASONE [Suspect]
     Active Substance: DEXAMETHASONE
     Dosage: 10 MG, Q8H
     Route: 042
  4. LIDOCAINE [Suspect]
     Active Substance: LIDOCAINE
     Indication: Cancer pain
     Dosage: 1 MG/KG,ON HOSPITAL DAY 17; INFUSION
     Route: 042
  5. LIDOCAINE [Suspect]
     Active Substance: LIDOCAINE
     Indication: Neuralgia
     Dosage: 1.6 MG/KG,TITRATED TO A MAXIMUMOF 1.6MG/KG/HOUR ON HOSPITAL DAY 17; INFUSION
     Route: 042
  6. LIDOCAINE [Suspect]
     Active Substance: LIDOCAINE
     Dosage: 2 MG/KG,LOADING DOSE; INFUSION
     Route: 042
  7. LIDOCAINE [Suspect]
     Active Substance: LIDOCAINE
     Dosage: 1 MG/KG,A CONTINUOUS INFUSION
     Route: 042
  8. LIDOCAINE [Suspect]
     Active Substance: LIDOCAINE
     Dosage: PREVIOUS INFUSIONS
  9. KETAMINE [Concomitant]
     Active Substance: KETAMINE
     Indication: Cancer pain
     Dosage: INITIATED AND EVENTUALLY TITRATED UP TO 0.3 MG/KG/HOUR

REACTIONS (6)
  - Hoigne^s syndrome [Recovering/Resolving]
  - Delirium [Recovering/Resolving]
  - Anxiety [Recovering/Resolving]
  - Hypoaesthesia oral [Recovering/Resolving]
  - Persecutory delusion [Recovering/Resolving]
  - Hallucination [Recovering/Resolving]
